FAERS Safety Report 19240918 (Version 1)
Quarter: 2021Q2

REPORT INFORMATION
  Report Type: Spontaneous
  Country: US (occurrence: US)
  Receive Date: 20210511
  Receipt Date: 20210511
  Transmission Date: 20210717
  Serious: Yes (Other)
  Sender: FDA-Public Use
  Company Number: US-ROCHE-2825142

PATIENT
  Age: 32 Year
  Sex: Male
  Weight: 91.2 kg

DRUGS (5)
  1. CABLIVI [Suspect]
     Active Substance: CAPLACIZUMAB-YHDP
     Route: 058
     Dates: start: 20200415
  2. CABLIVI [Suspect]
     Active Substance: CAPLACIZUMAB-YHDP
     Route: 058
     Dates: start: 20191224
  3. CELLCEPT [Suspect]
     Active Substance: MYCOPHENOLATE MOFETIL\MYCOPHENOLATE MOFETIL HYDROCHLORIDE
     Indication: THROMBOTIC MICROANGIOPATHY
     Route: 065
  4. CABLIVI [Suspect]
     Active Substance: CAPLACIZUMAB-YHDP
     Indication: THROMBOTIC MICROANGIOPATHY
     Route: 058
     Dates: start: 20190124
  5. LIPITOR [Concomitant]
     Active Substance: ATORVASTATIN CALCIUM

REACTIONS (19)
  - Skin haemorrhage [Unknown]
  - ADAMTS13 activity decreased [Recovering/Resolving]
  - Oral blood blister [Unknown]
  - Anxiety [Unknown]
  - Incorrect dose administered [Unknown]
  - Diarrhoea [Unknown]
  - Platelet count increased [Unknown]
  - Gingival bleeding [Recovered/Resolved]
  - Vomiting [Unknown]
  - Blood pressure abnormal [Unknown]
  - Back pain [Unknown]
  - Epistaxis [Unknown]
  - Blindness [Unknown]
  - Deafness [Unknown]
  - Contusion [Unknown]
  - Decreased appetite [Unknown]
  - Injection site extravasation [Unknown]
  - Blood lactate dehydrogenase increased [Unknown]
  - Nausea [Unknown]

NARRATIVE: CASE EVENT DATE: 201911
